FAERS Safety Report 8502517-7 (Version None)
Quarter: 2012Q3

REPORT INFORMATION
  Report Type: 
  Country: None (occurrence: None)
  Receive Date: 20120702
  Receipt Date: 20120618
  Transmission Date: 20120928
  Serious: Yes (Other)
  Sender: FDA-Public Use
  Company Number: 1206-323

PATIENT
  Age: 81 Year
  Sex: Male
  Weight: 97.0698 kg

DRUGS (1)
  1. EYLEA [Suspect]
     Indication: AGE-RELATED MACULAR DEGENERATION
     Dosage: 2 MG, 1 IN 1 D, INTRAVITREAL
     Dates: start: 20120615, end: 20120615

REACTIONS (5)
  - INTRAOCULAR PRESSURE INCREASED [None]
  - DRUG HYPERSENSITIVITY [None]
  - CORNEAL OEDEMA [None]
  - VISUAL ACUITY REDUCED [None]
  - AQUEOUS FIBRIN [None]
